FAERS Safety Report 7222032-0 (Version None)
Quarter: 2011Q1

REPORT INFORMATION
  Report Type: 
  Country: None (occurrence: None)
  Receive Date: 20110112
  Receipt Date: 20101229
  Transmission Date: 20110831
  Serious: Yes (Other)
  Sender: FDA-Public Use
  Company Number: IT-CELGENEUS-083-21880-10111999

PATIENT
  Sex: Male

DRUGS (6)
  1. LANSOPRAZOLE [Concomitant]
     Route: 048
     Dates: start: 20101001
  2. BACTRIM [Concomitant]
     Route: 048
     Dates: start: 20101001, end: 20101020
  3. ASPIRIN [Concomitant]
     Route: 048
     Dates: start: 20101015, end: 20101029
  4. REVLIMID [Suspect]
     Indication: MULTIPLE MYELOMA
     Route: 048
     Dates: start: 20101001, end: 20101020
  5. DEXAMETHASONE [Concomitant]
     Indication: MULTIPLE MYELOMA
     Route: 065
  6. ALLOPURINOL [Concomitant]
     Route: 048
     Dates: start: 20101001, end: 20101020

REACTIONS (2)
  - GENERALISED ERYTHEMA [None]
  - GRAFT VERSUS HOST DISEASE [None]
